FAERS Safety Report 12172237 (Version 7)
Quarter: 2021Q3

REPORT INFORMATION
  Report Type: Report from Study
  Country: US (occurrence: US)
  Receive Date: 20160311
  Receipt Date: 20210726
  Transmission Date: 20211014
  Serious: Yes (Disabling, Other)
  Sender: FDA-Public Use
  Company Number: US-SA-2015SA028904

PATIENT
  Age: 44 Year
  Sex: Male

DRUGS (11)
  1. ALEMTUZUMAB [Suspect]
     Active Substance: ALEMTUZUMAB
     Dosage: 12 MG, QD
     Route: 041
     Dates: start: 20160418, end: 20160418
  2. BACLOFEN. [Concomitant]
     Active Substance: BACLOFEN
     Dosage: 100 UG,UNK
  3. ZOLOFT [Concomitant]
     Active Substance: SERTRALINE HYDROCHLORIDE
     Dosage: 100 UG,UNK
  4. ALEMTUZUMAB [Suspect]
     Active Substance: ALEMTUZUMAB
     Indication: MULTIPLE SCLEROSIS
     Dosage: 12 MG, QD
     Route: 041
     Dates: start: 20150225, end: 20150226
  5. ACICLOVIR [Concomitant]
     Active Substance: ACYCLOVIR
     Dosage: 800 UG,UNK
  6. ALEMTUZUMAB [Suspect]
     Active Substance: ALEMTUZUMAB
     Dosage: 12 MG, QD
     Route: 041
     Dates: start: 20160414, end: 20160414
  7. ALEMTUZUMAB [Suspect]
     Active Substance: ALEMTUZUMAB
     Dosage: 12 MG, QD
     Route: 041
     Dates: start: 20170922, end: 20170926
  8. ALEMTUZUMAB [Suspect]
     Active Substance: ALEMTUZUMAB
     Dosage: 12 MG, QD
     Route: 041
     Dates: start: 20160420, end: 20160420
  9. ALEMTUZUMAB [Suspect]
     Active Substance: ALEMTUZUMAB
     Indication: RELAPSING MULTIPLE SCLEROSIS
     Dosage: 12 MG, QD
     Route: 041
     Dates: start: 20150223, end: 20150223
  10. ALEMTUZUMAB [Suspect]
     Active Substance: ALEMTUZUMAB
     Dosage: 12 MG, QD
     Route: 041
     Dates: start: 20150302, end: 20150303
  11. CLONAZEPAM. [Concomitant]
     Active Substance: CLONAZEPAM
     Dosage: 3 UG,UNK

REACTIONS (39)
  - Asthenia [Unknown]
  - Rash [Not Recovered/Not Resolved]
  - Psoriasis [Unknown]
  - Infusion related reaction [Unknown]
  - Nasal congestion [Not Recovered/Not Resolved]
  - Osteonecrosis [Not Recovered/Not Resolved]
  - Chills [Unknown]
  - Unevaluable event [Recovering/Resolving]
  - Product use issue [Unknown]
  - Urticaria [Recovered/Resolved]
  - Condition aggravated [Not Recovered/Not Resolved]
  - Tremor [Not Recovered/Not Resolved]
  - Disability [Not Recovered/Not Resolved]
  - Condition aggravated [Unknown]
  - Rash [Unknown]
  - Laboratory test abnormal [Not Recovered/Not Resolved]
  - Arthralgia [Unknown]
  - Condition aggravated [Not Recovered/Not Resolved]
  - Exercise tolerance decreased [Unknown]
  - Balance disorder [Unknown]
  - Platelet count decreased [Not Recovered/Not Resolved]
  - Nasopharyngitis [Not Recovered/Not Resolved]
  - Rhinorrhoea [Not Recovered/Not Resolved]
  - Clonus [Not Recovered/Not Resolved]
  - Feeling abnormal [Not Recovered/Not Resolved]
  - Drug ineffective [Not Recovered/Not Resolved]
  - Feeling abnormal [Unknown]
  - Musculoskeletal stiffness [Unknown]
  - Peripheral coldness [Not Recovered/Not Resolved]
  - Mobility decreased [Unknown]
  - Dysphonia [Unknown]
  - Dry skin [Unknown]
  - Malaise [Not Recovered/Not Resolved]
  - Gait disturbance [Not Recovered/Not Resolved]
  - Disorientation [Not Recovered/Not Resolved]
  - Dysstasia [Not Recovered/Not Resolved]
  - Exfoliative rash [Unknown]
  - Muscular weakness [Not Recovered/Not Resolved]
  - Pyrexia [Unknown]

NARRATIVE: CASE EVENT DATE: 2015
